FAERS Safety Report 16914835 (Version 1)
Quarter: 2019Q4

REPORT INFORMATION
  Report Type: Spontaneous
  Country: FR (occurrence: FR)
  Receive Date: 20191014
  Receipt Date: 20191014
  Transmission Date: 20200122
  Serious: Yes (Other)
  Sender: FDA-Public Use
  Company Number: FR-SA-2019SA276531

PATIENT
  Age: 32 Year
  Sex: Male
  Weight: 75 kg

DRUGS (4)
  1. TRUVADA [Concomitant]
     Active Substance: EMTRICITABINE\TENOFOVIR DISOPROXIL FUMARATE
     Dosage: ? LA DEMANDE EN DISCONTINUE
     Route: 048
  2. STANOZOLOL [Suspect]
     Active Substance: STANOZOLOL
     Route: 058
     Dates: start: 20190401, end: 20190731
  3. CLOMID [Suspect]
     Active Substance: CLOMIPHENE CITRATE
     Dates: start: 20190715, end: 20190731
  4. TAMOXIFENE BIOGARAN [Suspect]
     Active Substance: TAMOXIFEN
     Dates: start: 20190401, end: 20190731

REACTIONS (2)
  - Hepatitis [Recovering/Resolving]
  - Bilirubin conjugated increased [Recovering/Resolving]

NARRATIVE: CASE EVENT DATE: 20190701
